FAERS Safety Report 12451475 (Version 1)
Quarter: 2016Q2

REPORT INFORMATION
  Report Type: Spontaneous
  Country: US (occurrence: None)
  Receive Date: 20160608
  Receipt Date: 20160608
  Transmission Date: 20160815
  Serious: No
  Sender: FDA-Public Use
  Company Number: None

PATIENT
  Age: 21 Year
  Sex: Female

DRUGS (3)
  1. NATAZIA [Concomitant]
     Active Substance: DIENOGEST\ESTRADIOL VALERATE
  2. ADDERALL XR [Concomitant]
     Active Substance: AMPHETAMINE ASPARTATE\AMPHETAMINE SULFATE\DEXTROAMPHETAMINE SACCHARATE\DEXTROAMPHETAMINE SULFATE
  3. BOTOX [Suspect]
     Active Substance: ONABOTULINUMTOXINA
     Indication: MIGRAINE
     Dosage: AD Q3MO SC
     Route: 058
     Dates: start: 20160303

REACTIONS (2)
  - Trismus [None]
  - Adverse drug reaction [None]

NARRATIVE: CASE EVENT DATE: 2016
